FAERS Safety Report 8422466-2 (Version None)
Quarter: 2012Q2

REPORT INFORMATION
  Report Type: 
  Country: None (occurrence: None)
  Receive Date: 20120608
  Receipt Date: 20120604
  Transmission Date: 20120825
  Serious: Yes (Other)
  Sender: FDA-Public Use
  Company Number: US-PFIZER INC-2012133725

PATIENT
  Sex: Female
  Weight: 109 kg

DRUGS (9)
  1. LISINOPRIL [Concomitant]
     Dosage: 10 MG, UNK
  2. CRESTOR [Concomitant]
     Dosage: 40 MG, UNK
  3. CHANTIX [Suspect]
     Indication: SMOKING CESSATION THERAPY
     Dosage: 0.5 MG, 1X/DAY
     Route: 048
     Dates: start: 20120521, end: 20120501
  4. LEVOTHYROXINE [Concomitant]
     Dosage: 0.2 MG, UNK
  5. ATENOLOL [Concomitant]
     Dosage: 50 MG, UNK
  6. WARFARIN [Concomitant]
     Dosage: 10 MG, UNK
  7. OMEPRAZOLE [Concomitant]
     Dosage: 20 MG, UNK
  8. CITALOPRAM [Concomitant]
     Dosage: 40 MG, UNK
  9. CHANTIX [Suspect]
     Dosage: 1 MG, 2X/DAY
     Route: 048
     Dates: start: 20120501, end: 20120601

REACTIONS (8)
  - BACK PAIN [None]
  - JOINT RANGE OF MOTION DECREASED [None]
  - INSOMNIA [None]
  - MUSCLE SPASMS [None]
  - LIMB DISCOMFORT [None]
  - PAIN [None]
  - MUSCULOSKELETAL DISCOMFORT [None]
  - DRUG LEVEL CHANGED [None]
